FAERS Safety Report 14158455 (Version 2)
Quarter: 2017Q4

REPORT INFORMATION
  Report Type: Report from Study
  Country: GB (occurrence: GB)
  Receive Date: 20171103
  Receipt Date: 20171110
  Transmission Date: 20180321
  Serious: No
  Sender: FDA-Public Use
  Company Number: GB-ASTRAZENECA-2017SF11560

PATIENT
  Age: 72 Year
  Sex: Female
  Weight: 84.5 kg

DRUGS (11)
  1. THYROXINE [Concomitant]
     Active Substance: LEVOTHYROXINE
     Indication: HYPOTHYROIDISM
     Dates: start: 2009
  2. FULVESTRANT. [Suspect]
     Active Substance: FULVESTRANT
     Indication: BREAST CANCER METASTATIC
     Route: 030
  3. CANDESARTAN. [Concomitant]
     Active Substance: CANDESARTAN
     Indication: HYPERTENSION
     Dates: start: 1997
  4. BENDROFLUMETHIAZIDE [Concomitant]
     Active Substance: BENDROFLUMETHIAZIDE
     Indication: HYPERTENSION
     Dates: start: 1997
  5. MIGRALEAVE [Concomitant]
     Indication: MIGRAINE
     Dates: start: 1997
  6. AZD2014 [Suspect]
     Active Substance: INVESTIGATIONAL PRODUCT
     Indication: BREAST CANCER METASTATIC
     Route: 048
     Dates: start: 20170926, end: 20171030
  7. LANTUS [Concomitant]
     Active Substance: INSULIN GLARGINE
     Indication: TYPE 2 DIABETES MELLITUS
     Dosage: 44 UNITS OD
     Dates: start: 2013
  8. PALBOCICLIB [Suspect]
     Active Substance: PALBOCICLIB
     Indication: BREAST CANCER METASTATIC
     Route: 048
     Dates: start: 20170926, end: 20171030
  9. CLONIDINE. [Concomitant]
     Active Substance: CLONIDINE
     Indication: HYPERTENSION
     Dates: start: 1997
  10. CODEINE PHOSPHATE [Concomitant]
     Active Substance: CODEINE PHOSPHATE
     Indication: SCIATICA
     Dosage: 30.0MG AS REQUIRED
     Dates: start: 1990
  11. PARACETAMOL [Concomitant]
     Active Substance: ACETAMINOPHEN
     Indication: SCIATICA
     Dosage: 500.0MG AS REQUIRED
     Dates: start: 1990

REACTIONS (1)
  - Otitis media [Not Recovered/Not Resolved]

NARRATIVE: CASE EVENT DATE: 20171101
